FAERS Safety Report 12438549 (Version 1)
Quarter: 2016Q2

REPORT INFORMATION
  Report Type: Spontaneous
  Country: FR (occurrence: FR)
  Receive Date: 20160606
  Receipt Date: 20160606
  Transmission Date: 20160815
  Serious: Yes (Life-Threatening, Hospitalization)
  Sender: FDA-Public Use
  Company Number: FR-PFIZER INC-2016282557

PATIENT
  Age: 71 Year
  Sex: Female

DRUGS (19)
  1. METFORMIN HCL [Suspect]
     Active Substance: METFORMIN HYDROCHLORIDE
     Indication: TYPE 2 DIABETES MELLITUS
     Dosage: 1000 MG, 3X/DAY
     Route: 048
     Dates: start: 20160504, end: 20160511
  2. DIFFU K [Suspect]
     Active Substance: POTASSIUM CHLORIDE
     Indication: HYPOKALAEMIA
     Dosage: 2 DF, 3X/DAY
     Route: 048
     Dates: start: 20160504, end: 20160510
  3. JANUMET [Concomitant]
     Active Substance: METFORMIN HYDROCHLORIDE\SITAGLIPTIN PHOSPHATE
     Dosage: 1 DF, 2X/DAY
     Dates: end: 20160504
  4. TAHOR [Concomitant]
     Active Substance: ATORVASTATIN CALCIUM
     Dosage: UNK
     Dates: end: 20160511
  5. ALDACTONE [Suspect]
     Active Substance: SPIRONOLACTONE
     Indication: HYPERTENSION
     Dosage: 25 MG, 1X/DAY
     Route: 048
     Dates: end: 20160511
  6. VILDAGLIPTINE [Concomitant]
     Dosage: 50 MG, 2X/DAY
     Dates: start: 20160504, end: 20160511
  7. ACTISKENAN [Concomitant]
     Active Substance: MORPHINE SULFATE
     Dosage: 10 MG, 6 TIMES DAILY
     Dates: start: 20160506, end: 20160509
  8. PRIMPERAN [Concomitant]
     Active Substance: METOCLOPRAMIDE HYDROCHLORIDE
     Dosage: 10 MG, 3X/DAY
     Dates: start: 20160506
  9. SIMVASTATINE [Concomitant]
     Active Substance: SIMVASTATIN
     Dosage: 40 MG, DAILY
  10. UVEDOSE [Concomitant]
     Active Substance: CHOLECALCIFEROL
  11. OXYNORMORO [Concomitant]
     Active Substance: OXYCODONE
     Dosage: UNK, 6 TIMES DAILY
     Dates: start: 20160509
  12. TOPALGIC [Concomitant]
     Active Substance: TRAMADOL
     Dosage: 100 MG, 2X/DAY
     Dates: start: 20160504, end: 20160506
  13. ZYLORIC [Concomitant]
     Active Substance: ALLOPURINOL
     Dosage: 300 MG, DAILY
     Dates: end: 20160511
  14. TAREG [Suspect]
     Active Substance: VALSARTAN
     Indication: HYPERTENSION
     Dosage: 80 MG, 1X/DAY
     Route: 048
     Dates: end: 20160511
  15. LANZOR [Concomitant]
     Active Substance: LANSOPRAZOLE
     Dosage: 15 MG, DAILY
  16. PARACETAMOL [Concomitant]
     Active Substance: ACETAMINOPHEN
     Dosage: UNK
     Dates: start: 20160504
  17. SKENAN [Concomitant]
     Active Substance: MORPHINE SULFATE
     Indication: SCIATICA
     Dosage: 30 MG, 2X/DAY
     Dates: start: 201603, end: 20160504
  18. SKENAN [Concomitant]
     Active Substance: MORPHINE SULFATE
     Dosage: 30 MG, 2X/DAY
     Dates: start: 20160506, end: 20160509
  19. OXYCONTIN [Concomitant]
     Active Substance: OXYCODONE HYDROCHLORIDE
     Dosage: 10, TWICE DAILY
     Dates: start: 20160509

REACTIONS (5)
  - Renal failure [Recovering/Resolving]
  - Overdose [Recovered/Resolved]
  - Lactic acidosis [Recovered/Resolved]
  - Hyperkalaemia [Recovered/Resolved]
  - Acute kidney injury [Recovering/Resolving]

NARRATIVE: CASE EVENT DATE: 20160510
